FAERS Safety Report 4947660-4 (Version None)
Quarter: 2006Q1

REPORT INFORMATION
  Report Type: 
  Country: None (occurrence: None)
  Receive Date: 20060314
  Receipt Date: 20060301
  Transmission Date: 20060701
  Serious: Yes (Hospitalization, Other)
  Sender: FDA-Public Use
  Company Number: 2006032575

PATIENT
  Sex: Female

DRUGS (10)
  1. ACCUPRIL [Suspect]
     Indication: RENAL DISORDER
     Dosage: 5 MG (5 MG, 1 IN 1 D) ORAL
     Route: 048
  2. ZOLOFT [Suspect]
     Indication: DEPRESSION
     Dosage: 100 MG (100 MG, 1 IN 1 D) ORAL
     Route: 048
     Dates: start: 20060101
  3. OXAPROZIN [Suspect]
     Indication: ARTHRALGIA
     Dosage: 2 IN 1 D, ORAL
     Route: 048
     Dates: start: 20060101, end: 20060101
  4. LASIX [Suspect]
     Indication: ILL-DEFINED DISORDER
     Dosage: ORAL
     Route: 048
  5. HUMULIN N [Concomitant]
  6. KLOR-CON [Concomitant]
  7. ACTOS [Concomitant]
  8. ACETAMINOPHEN [Concomitant]
  9. PRILOSEC [Concomitant]
  10. PROTONIX [Concomitant]

REACTIONS (15)
  - ANAEMIA [None]
  - ANXIETY [None]
  - DEPRESSION [None]
  - DIZZINESS [None]
  - FLUID INTAKE REDUCED [None]
  - FULL BLOOD COUNT DECREASED [None]
  - GASTROINTESTINAL DISORDER [None]
  - HIATUS HERNIA [None]
  - HYPOTENSION [None]
  - INTESTINAL PERFORATION [None]
  - OSTEOARTHRITIS [None]
  - POLYURIA [None]
  - RENAL DISORDER [None]
  - URINE OUTPUT INCREASED [None]
  - WEIGHT DECREASED [None]
